FAERS Safety Report 7915633-5 (Version None)
Quarter: 2011Q4

REPORT INFORMATION
  Report Type: 
  Country: None (occurrence: None)
  Receive Date: 20111115
  Receipt Date: 20111102
  Transmission Date: 20120403
  Serious: Yes (Hospitalization)
  Sender: FDA-Public Use
  Company Number: US-GLAXOSMITHKLINE-A0871289A

PATIENT
  Age: 56 Year
  Sex: Male
  Weight: 137.7 kg

DRUGS (1)
  1. AVANDIA [Suspect]
     Indication: TYPE 2 DIABETES MELLITUS
     Dosage: 8MG PER DAY
     Route: 048
     Dates: start: 20020101, end: 20090101

REACTIONS (19)
  - CEREBROVASCULAR ACCIDENT [None]
  - PERICARDIAL EFFUSION [None]
  - ACTIVITIES OF DAILY LIVING IMPAIRED [None]
  - CARDIAC FUNCTION DISTURBANCE POSTOPERATIVE [None]
  - SINUS BRADYCARDIA [None]
  - BUNDLE BRANCH BLOCK RIGHT [None]
  - PLEURAL EFFUSION [None]
  - TRANSIENT ISCHAEMIC ATTACK [None]
  - ARTERIOSCLEROSIS [None]
  - CORONARY ARTERY STENOSIS [None]
  - OEDEMA PERIPHERAL [None]
  - MYOCARDIAL INFARCTION [None]
  - CORONARY ARTERY OCCLUSION [None]
  - ATRIAL FIBRILLATION [None]
  - ATELECTASIS [None]
  - EMOTIONAL DISTRESS [None]
  - ANHEDONIA [None]
  - FEAR [None]
  - PAIN [None]
